FAERS Safety Report 9719400 (Version 2)
Quarter: 2013Q4

REPORT INFORMATION
  Report Type: Spontaneous
  Country: DE (occurrence: DE)
  Receive Date: 20131128
  Receipt Date: 20131128
  Transmission Date: 20140711
  Serious: Yes (Other)
  Sender: FDA-Public Use
  Company Number: DE-AMGEN-DEUSP2013028877

PATIENT
  Age: 75 Year
  Sex: Female
  Weight: 68 kg

DRUGS (8)
  1. ENBREL [Suspect]
     Indication: PRODUCT USED FOR UNKNOWN INDICATION
     Dosage: 50 MG, WEEKLY
     Route: 058
     Dates: start: 20121011
  2. PREDNISOLON                        /00016201/ [Concomitant]
     Dosage: 5 MG, QD
     Route: 048
  3. ARCOXIA [Concomitant]
     Dosage: 90 MG, (ONCE A DAY) AS NEEDED
  4. ALENDRONIC ACID [Concomitant]
     Indication: OSTEOPOROSIS
     Dosage: 70 MG, WEEKLY
     Route: 048
     Dates: start: 201005
  5. DEKRISTOL [Concomitant]
     Indication: OSTEOPOROSIS
     Dosage: 40 IU, MONTHLY
     Route: 048
     Dates: start: 201107
  6. ATACAND [Concomitant]
     Indication: HYPERTENSION
     Dosage: 8 MG, UNK
     Dates: start: 201211
  7. ZOLPIDEM [Concomitant]
     Indication: SLEEP DISORDER
     Dosage: 5 MG, UNK
  8. NOVAMINSULFON [Concomitant]
     Indication: PAIN
     Dosage: UNK, AS NEEDED
     Dates: start: 2012

REACTIONS (2)
  - Arthritis [Not Recovered/Not Resolved]
  - Back pain [Not Recovered/Not Resolved]
